FAERS Safety Report 8187116-1 (Version None)
Quarter: 2012Q1

REPORT INFORMATION
  Report Type: 
  Country: None (occurrence: None)
  Receive Date: 20120213
  Receipt Date: 20111025
  Transmission Date: 20120608
  Serious: No
  Sender: FDA-Public Use
  Company Number: 1000024952

PATIENT
  Age: 21 Year
  Sex: Female

DRUGS (5)
  1. ZOLOFT [Concomitant]
  2. BIRTH CONTROL NOS (BIRTH CONTROL NOS) (BIRTH CONTROL NOS) [Concomitant]
  3. MOBIC [Concomitant]
  4. SAVELLA [Suspect]
     Indication: FIBROMYALGIA
     Dosage: SEE IMAGE
     Route: 048
     Dates: start: 20110801, end: 20110801
  5. SAVELLA [Suspect]
     Indication: FIBROMYALGIA
     Dosage: SEE IMAGE
     Route: 048
     Dates: start: 20110101, end: 20110101

REACTIONS (1)
  - HYPERHIDROSIS [None]
